FAERS Safety Report 13822758 (Version 1)
Quarter: 2017Q3

REPORT INFORMATION
  Report Type: Report from Study
  Country: US (occurrence: US)
  Receive Date: 20170801
  Receipt Date: 20170801
  Transmission Date: 20171127
  Serious: Yes (Disabling, Other)
  Sender: FDA-Public Use
  Company Number: PHEH2017US023361

PATIENT
  Sex: Male

DRUGS (1)
  1. ZORTRESS [Suspect]
     Active Substance: EVEROLIMUS
     Indication: LIVER TRANSPLANT
     Route: 048

REACTIONS (4)
  - Protein urine present [Unknown]
  - Renal failure [Not Recovered/Not Resolved]
  - Diabetes mellitus [Unknown]
  - Renal disorder [Unknown]
